FAERS Safety Report 19029812 (Version 2)
Quarter: 2021Q1

REPORT INFORMATION
  Report Type: Spontaneous
  Country: US (occurrence: US)
  Receive Date: 20210319
  Receipt Date: 20210331
  Transmission Date: 20210420
  Serious: Yes (Hospitalization, Other)
  Sender: FDA-Public Use
  Company Number: US-AUROBINDO-AUR-APL-2021-010751

PATIENT
  Age: 3 Year
  Sex: Female

DRUGS (3)
  1. CIPROFLOXACIN. [Suspect]
     Active Substance: CIPROFLOXACIN
     Indication: ESCHERICHIA INFECTION
     Dosage: UNK
     Route: 065
  2. CALCIUM DISODIUM EDETATE [Concomitant]
     Indication: CHELATION THERAPY
     Dosage: UNK
     Route: 065
  3. DIMERCAPROL. [Concomitant]
     Active Substance: DIMERCAPROL
     Indication: CHELATION THERAPY
     Dosage: UNK
     Route: 065

REACTIONS (4)
  - Encephalopathy [Recovered/Resolved]
  - Inappropriate antidiuretic hormone secretion [Recovered/Resolved]
  - Irritability [Recovered/Resolved]
  - Confusional state [Recovered/Resolved]
